FAERS Safety Report 17101774 (Version 1)
Quarter: 2019Q4

REPORT INFORMATION
  Report Type: Spontaneous
  Country: CZ (occurrence: CZ)
  Receive Date: 20191202
  Receipt Date: 20191202
  Transmission Date: 20200122
  Serious: Yes (Other)
  Sender: FDA-Public Use
  Company Number: CZ-MYLANLABS-2019M1117013

PATIENT
  Age: 17 Year
  Sex: Male

DRUGS (3)
  1. OLANZAPINE. [Suspect]
     Active Substance: OLANZAPINE
     Indication: INTELLECTUAL DISABILITY
     Dosage: 10 MG, UNKNOWN
     Route: 065
  2. LEVOPROMAZIN [Concomitant]
     Active Substance: LEVOMEPROMAZINE
     Dosage: 125 MG, UNKNOWN
     Route: 065
  3. CHLORPROTHIXEN                     /00012102/ [Concomitant]
     Active Substance: CHLORPROTHIXENE HYDROCHLORIDE
     Dosage: 250 MG, UNKNOWN
     Route: 065

REACTIONS (4)
  - Deep vein thrombosis [Unknown]
  - Weight increased [Unknown]
  - Off label use [Unknown]
  - Body mass index increased [Unknown]
